FAERS Safety Report 8587754 (Version 7)
Quarter: 2014Q2

REPORT INFORMATION
  Report Type: Spontaneous
  Country: US (occurrence: US)
  Receive Date: 20120531
  Receipt Date: 20140617
  Transmission Date: 20141212
  Serious: Yes (Hospitalization, Other)
  Sender: FDA-Public Use
  Company Number: US-ASTRAZENECA-2012SE33464

PATIENT
  Age: 28408 Day
  Sex: Female
  Weight: 60.8 kg

DRUGS (26)
  1. NEXIUM [Suspect]
     Indication: GASTROOESOPHAGEAL REFLUX DISEASE
     Route: 048
     Dates: start: 20040805
  2. NEXIUM [Suspect]
     Indication: GASTROOESOPHAGEAL REFLUX DISEASE
     Route: 048
     Dates: start: 20050808
  3. NEXIUM [Suspect]
     Indication: GASTROOESOPHAGEAL REFLUX DISEASE
     Route: 048
     Dates: start: 2006, end: 2009
  4. NEXIUM [Suspect]
     Indication: GASTROOESOPHAGEAL REFLUX DISEASE
     Route: 048
     Dates: start: 20090206
  5. PRILOSEC [Suspect]
     Indication: ULCER
     Route: 048
  6. PRILOSEC [Suspect]
     Indication: ULCER
     Route: 048
     Dates: start: 20070927
  7. POTASSIUM CL [Concomitant]
     Route: 048
     Dates: start: 20060503
  8. FUROSEMIDE [Concomitant]
     Dosage: 20 MG TK 1 T PO QD PRN
     Route: 048
     Dates: start: 20060503
  9. ACETAMINOPHEN W/CODEINE [Concomitant]
     Route: 048
     Dates: start: 20060518
  10. TRAMADOL [Concomitant]
     Route: 048
     Dates: start: 20051215
  11. TUMS [Concomitant]
  12. MECLIZINE [Concomitant]
     Dosage: 25 MG TAKE ONE AND HALF TABLET THREE TIMES DAILY AS NEEDED
     Route: 048
     Dates: start: 20110718
  13. PANTOPRAZOLE/PROTONIX [Concomitant]
     Dosage: 40 MG, TAKE ONE TABLET BY MOUTH EVERY DAY FOR 14 DAYS
     Route: 048
     Dates: start: 20110922
  14. ROPINIROLE [Concomitant]
     Route: 048
     Dates: start: 20111017
  15. HYDROCODONE W/ACETAMINOPHEN [Concomitant]
     Indication: PAIN
     Dosage: 5/500 1 TAB THREE TIMES A DAY AS NEEDED
     Route: 048
     Dates: start: 20111018
  16. ACTONEL [Concomitant]
     Route: 048
     Dates: start: 20060814
  17. AZITHROMYCIN [Concomitant]
     Route: 048
     Dates: start: 20070313
  18. FOSAMAX [Concomitant]
     Route: 048
     Dates: start: 20070205
  19. LISINOPRIL [Concomitant]
     Route: 048
     Dates: start: 20070502
  20. METOPROLOL TARTRATE [Concomitant]
     Route: 048
     Dates: start: 20070502
  21. METOCLOPRAMIDE [Concomitant]
     Route: 048
     Dates: start: 20070822
  22. SULFAMETH/TRIMETHOPRIM [Concomitant]
     Dosage: 5/325 MG TAKE ONE TAB EVERY SIX HOURS AS NEEDED
     Route: 048
     Dates: start: 20070822
  23. BONIVA [Concomitant]
     Dosage: 150 MG ONCE MONTHLY TABTAKE ONE TAB EVERY MONTH
     Route: 048
     Dates: start: 20070822
  24. METRONIDAZOLE [Concomitant]
     Route: 048
     Dates: start: 20080206
  25. NEOMYCIN [Concomitant]
     Route: 048
     Dates: start: 20080206
  26. METOPROLOL [Concomitant]
     Route: 048
     Dates: start: 200704

REACTIONS (15)
  - Hip fracture [Unknown]
  - Wrist fracture [Unknown]
  - Spinal fracture [Unknown]
  - Spinal compression fracture [Unknown]
  - Radius fracture [Unknown]
  - Fall [Unknown]
  - Pneumonia [Unknown]
  - Femur fracture [Unknown]
  - Anaemia [Unknown]
  - Ulna fracture [Unknown]
  - Osteoporosis [Unknown]
  - Osteopenia [Unknown]
  - Clavicle fracture [Unknown]
  - Osteoarthritis [Unknown]
  - Arthritis [Unknown]
